FAERS Safety Report 8413421 (Version 2)
Quarter: 2013Q1

REPORT INFORMATION
  Report Type: Report from Study
  Country: DK (occurrence: DK)
  Receive Date: 20120217
  Receipt Date: 20130104
  Transmission Date: 20140127
  Serious: Yes (Hospitalization)
  Sender: FDA-Public Use
  Company Number: DK-ABBOTT-12P-044-0902999-08

PATIENT
  Age: 71 Year
  Sex: Female

DRUGS (5)
  1. HUMIRA [Suspect]
     Indication: CROHN^S DISEASE
     Route: 058
     Dates: start: 20081124, end: 20091008
  2. HUMIRA [Suspect]
     Route: 058
     Dates: start: 20110209, end: 20110908
  3. TRADOLAN [Concomitant]
     Indication: PAIN
     Dates: start: 20090310
  4. PARACETAMOL [Concomitant]
     Indication: PAIN
     Dates: start: 20090706
  5. CALCIUM D3 [Concomitant]
     Indication: INFLAMMATORY BOWEL DISEASE
     Dosage: CALCIUM 400MG + VITAMIN D 16 MCG
     Dates: start: 20080422

REACTIONS (1)
  - Enterostomy closure [Unknown]
